FAERS Safety Report 8107538-4 (Version None)
Quarter: 2011Q4

REPORT INFORMATION
  Report Type: 
  Country: None (occurrence: None)
  Receive Date: 20111223
  Receipt Date: 20110517
  Transmission Date: 20120403
  Serious: Yes (Hospitalization)
  Sender: FDA-Public Use
  Company Number: 327938

PATIENT
  Age: 67 Year
  Sex: Female

DRUGS (7)
  1. ASPIRIN [Concomitant]
  2. PLACEBO [Suspect]
     Indication: TYPE 2 DIABETES MELLITUS
  3. INSULIN GLARGINE (INSULIN GLARGINE) [Suspect]
     Indication: TYPE 2 DIABETES MELLITUS
  4. LOVENOX [Concomitant]
  5. LEVEMIR [Suspect]
     Indication: TYPE 2 DIABETES MELLITUS
     Dosage: 48 IU, QD, SUBCUTANEOUS
     Route: 058
     Dates: start: 20110407
  6. LABETALOL HCL [Concomitant]
  7. SAXAGLIPTIN (SAXAGLIPTIN) [Suspect]
     Indication: TYPE 2 DIABETES MELLITUS
     Dates: start: 20110215

REACTIONS (1)
  - HYPOGLYCAEMIA [None]
